FAERS Safety Report 8853832 (Version 1)
Quarter: 2012Q4

REPORT INFORMATION
  Report Type: 
  Country: US (occurrence: US)
  Receive Date: 20121022
  Receipt Date: 20121022
  Transmission Date: 20130627
  Serious: No
  Sender: FDA-Public Use
  Company Number: US-PFIZER INC-2012262419

PATIENT
  Age: 54 Year
  Sex: Male
  Weight: 90.7 kg

DRUGS (1)
  1. LYRICA [Suspect]
     Indication: FIBROMYALGIA
     Dosage: 150 mg, 3x/day
     Route: 048
     Dates: start: 200906

REACTIONS (3)
  - Pain [Unknown]
  - Anxiety [Unknown]
  - Hyperhidrosis [Unknown]
